FAERS Safety Report 15577934 (Version 1)
Quarter: 2018Q4

REPORT INFORMATION
  Report Type: Spontaneous
  Country: US (occurrence: US)
  Receive Date: 20181029
  Receipt Date: 20181029
  Transmission Date: 20190205
  Serious: Yes (Other)
  Sender: FDA-Public Use
  Company Number: None

PATIENT
  Age: 63 Year
  Sex: Female
  Weight: 59.42 kg

DRUGS (9)
  1. ZYRTEC [Concomitant]
     Active Substance: CETIRIZINE HYDROCHLORIDE
  2. ASPIRIN. [Concomitant]
     Active Substance: ASPIRIN
  3. ACETAMINOPHEN. [Concomitant]
     Active Substance: ACETAMINOPHEN
  4. MULTIVITAMIN [Concomitant]
     Active Substance: VITAMINS
  5. DIPHENHYDRAMINE. [Concomitant]
     Active Substance: DIPHENHYDRAMINE
  6. ATORVASTATIN [Concomitant]
     Active Substance: ATORVASTATIN
  7. ESCITALOPRAM [Concomitant]
     Active Substance: ESCITALOPRAM OXALATE
  8. EYLEA [Suspect]
     Active Substance: AFLIBERCEPT
     Indication: MACULAR OEDEMA
     Dosage: ?          QUANTITY:1 DF DOSAGE FORM;OTHER FREQUENCY:ONCE EVERY 4-6 WEE;OTHER ROUTE:INJECTION?
     Dates: start: 20180702, end: 20180912
  9. PROBIOTICS [Concomitant]
     Active Substance: PROBIOTICS NOS

REACTIONS (1)
  - Retinal detachment [None]

NARRATIVE: CASE EVENT DATE: 20180903
